FAERS Safety Report 4539975-9 (Version None)
Quarter: 2004Q4

REPORT INFORMATION
  Report Type: 
  Country: None (occurrence: None)
  Receive Date: 20041223
  Receipt Date: 20041211
  Transmission Date: 20050328
  Serious: Yes (Hospitalization)
  Sender: FDA-Public Use
  Company Number: 2004110433

PATIENT
  Age: 52 Year
  Sex: Male
  Weight: 79.3795 kg

DRUGS (7)
  1. XANAX [Suspect]
     Indication: PANIC ATTACK
     Dosage: 8 MG (2 MG, QID INTERVAL: EVERY DAY), ORAL
     Route: 048
     Dates: start: 19980101, end: 19990101
  2. DIAZEPAM [Suspect]
     Indication: ILL-DEFINED DISORDER
     Dosage: ORAL
     Route: 048
     Dates: end: 19990101
  3. MORPHINE SULFATE [Concomitant]
  4. OXYCOCOET (OXYCODONE HYDROCHLORIDE, PARACETAMOL) [Concomitant]
  5. CARBAMAZEPINE [Concomitant]
  6. LEVOTHYROXINE SODIUM [Concomitant]
  7. AMITRIPTYLINE HYDROCHLORIDE [Concomitant]

REACTIONS (5)
  - CATHETER RELATED INFECTION [None]
  - DRUG WITHDRAWAL SYNDROME [None]
  - HAEMORRHAGE [None]
  - SOMNOLENCE [None]
  - STAPHYLOCOCCAL INFECTION [None]
